FAERS Safety Report 12472521 (Version 1)
Quarter: 2016Q2

REPORT INFORMATION
  Report Type: Report from Study
  Country: US (occurrence: US)
  Receive Date: 20160616
  Receipt Date: 20160616
  Transmission Date: 20160815
  Serious: Yes (Other)
  Sender: FDA-Public Use
  Company Number: US-AMGEN-USASL2016075382

PATIENT
  Age: 76 Year
  Sex: Male

DRUGS (1)
  1. ENBREL [Suspect]
     Active Substance: ETANERCEPT
     Indication: PSORIATIC ARTHROPATHY
     Dosage: UNK UNK, QWK
     Route: 065
     Dates: start: 2012

REACTIONS (13)
  - Hypertension [Unknown]
  - Renal disorder [Unknown]
  - Diabetes mellitus [Unknown]
  - Intervertebral disc degeneration [Unknown]
  - Glaucoma [Unknown]
  - Irritability [Unknown]
  - Intervertebral disc protrusion [Unknown]
  - Chronic kidney disease [Unknown]
  - Sciatica [Unknown]
  - Macular degeneration [Unknown]
  - Blood cholesterol increased [Unknown]
  - Dyspnoea [Unknown]
  - Seizure [Unknown]
